FAERS Safety Report 4798963-8 (Version None)
Quarter: 2005Q4

REPORT INFORMATION
  Report Type: 
  Country: None (occurrence: None)
  Receive Date: 20051011
  Receipt Date: 20050927
  Transmission Date: 20060501
  Serious: Yes (Hospitalization)
  Sender: FDA-Public Use
  Company Number: MK200509-0312-1

PATIENT
  Age: 29 Year
  Sex: Female

DRUGS (1)
  1. METHADOSE [Suspect]
     Indication: DEPENDENCE
     Dosage: 150 MG, QD  ~ ONE YEAR

REACTIONS (8)
  - ARRHYTHMIA [None]
  - BRADYCARDIA [None]
  - CARDIOMYOPATHY [None]
  - ELECTROCARDIOGRAM QT PROLONGED [None]
  - EXTRASYSTOLES [None]
  - PALPITATIONS [None]
  - SYNCOPE [None]
  - VENTRICULAR EXTRASYSTOLES [None]
